FAERS Safety Report 9617993 (Version 2)
Quarter: 2014Q1

REPORT INFORMATION
  Report Type: Spontaneous
  Country: GB (occurrence: GB)
  Receive Date: 20131011
  Receipt Date: 20140130
  Transmission Date: 20141002
  Serious: Yes (Disabling, Other)
  Sender: FDA-Public Use
  Company Number: GB-WATSON-2013-18350

PATIENT
  Age: 17 Year
  Sex: Female
  Weight: 52 kg

DRUGS (2)
  1. SERTRALINE HYDROCHLORIDE (UNKNOWN) [Suspect]
     Indication: DEPRESSION
     Dosage: 50 MG, UNKNOWN
     Route: 048
     Dates: start: 20130828, end: 20130903
  2. PROPRANOLOL [Concomitant]
     Indication: PRODUCT USED FOR UNKNOWN INDICATION
     Dosage: UNK
     Route: 065
     Dates: end: 201308

REACTIONS (4)
  - Hypersensitivity [Recovering/Resolving]
  - Arthralgia [Recovering/Resolving]
  - Ocular hyperaemia [Recovering/Resolving]
  - Chromaturia [Recovering/Resolving]
